FAERS Safety Report 6938193-4 (Version None)
Quarter: 2010Q3

REPORT INFORMATION
  Report Type: 
  Country: None (occurrence: None)
  Receive Date: 20100824
  Receipt Date: 20100811
  Transmission Date: 20110219
  Serious: No
  Sender: FDA-Public Use
  Company Number: US-JNJFOC-20100804235

PATIENT
  Sex: Female
  Weight: 92.53 kg

DRUGS (7)
  1. FENTANYL CITRATE [Suspect]
     Indication: CANCER PAIN
     Route: 062
  2. FENTANYL CITRATE [Suspect]
     Route: 062
  3. OMEPRAZOLE [Concomitant]
     Route: 048
  4. METOPROLOL [Concomitant]
     Indication: BLOOD PRESSURE
     Route: 048
  5. ALLOPURINOL [Concomitant]
     Indication: GOUT
     Route: 048
  6. LOVAZA [Concomitant]
     Indication: FATTY ACID DEFICIENCY
     Route: 048
  7. XANAX [Concomitant]
     Indication: ANXIETY
     Dosage: AS NEEDED
     Route: 048

REACTIONS (2)
  - ARTHRALGIA [None]
  - WRONG TECHNIQUE IN DRUG USAGE PROCESS [None]
